FAERS Safety Report 4454683-0 (Version None)
Quarter: 2004Q3

REPORT INFORMATION
  Report Type: 
  Country: None (occurrence: None)
  Receive Date: 20040920
  Receipt Date: 20040920
  Transmission Date: 20050211
  Serious: Yes (Other)
  Sender: FDA-Public Use
  Company Number: None

PATIENT
  Sex: Female

DRUGS (1)
  1. PREVACID [Suspect]
     Indication: GASTROOESOPHAGEAL REFLUX DISEASE
     Dosage: 30MG QD ORAL
     Route: 048

REACTIONS (7)
  - ANOREXIA [None]
  - ANXIETY [None]
  - CHEST DISCOMFORT [None]
  - FLUID INTAKE REDUCED [None]
  - MARKEDLY REDUCED DIETARY INTAKE [None]
  - PALPITATIONS [None]
  - WEIGHT DECREASED [None]
